FAERS Safety Report 5747228-6 (Version None)
Quarter: 2008Q2

REPORT INFORMATION
  Report Type: 
  Country: None (occurrence: None)
  Receive Date: 20080520
  Receipt Date: 20080508
  Transmission Date: 20081010
  Serious: Yes (Other)
  Sender: FDA-Public Use
  Company Number: DSA_31836_2008

PATIENT
  Age: 82 Year
  Sex: Female

DRUGS (1)
  1. TAVOR /00273201/ (TAVOR - LORAZEPAM)(NOT SPECIFIED) [Suspect]
     Indication: DRUG USE FOR UNKNOWN INDICATION
     Dosage: (2.5 MG 3 TO 4 TIMES A DAY ORAL) , (DF ORAL)
     Route: 048
     Dates: start: 20080401

REACTIONS (1)
  - PERSONALITY CHANGE [None]
